FAERS Safety Report 8825876 (Version 4)
Quarter: 2013Q1

REPORT INFORMATION
  Report Type: Spontaneous
  Country: GB (occurrence: GB)
  Receive Date: 20121005
  Receipt Date: 20130131
  Transmission Date: 20140127
  Serious: Yes (Disabling, Other)
  Sender: FDA-Public Use
  Company Number: GB-BRISTOL-MYERS SQUIBB COMPANY-16996738

PATIENT
  Age: 64 Year
  Sex: Female
  Weight: 48.1 kg

DRUGS (9)
  1. PRAVASTATIN SODIUM [Suspect]
     Indication: HYPERLIPIDAEMIA
     Dosage: ALSO TOOK 40 MG ON 01MAR10 AND 20MG ON 16MAR10
     Route: 048
     Dates: start: 20100205
  2. SIMVASTATIN [Suspect]
     Indication: HYPERLIPIDAEMIA
     Dosage: ALSO COMMENCED FRM 14MAY10
     Route: 048
     Dates: start: 20100128
  3. ATORVASTATIN [Suspect]
     Indication: HYPERLIPIDAEMIA
     Route: 048
     Dates: start: 20100609
  4. BENDROFLUAZIDE [Concomitant]
     Route: 048
     Dates: start: 20100401, end: 20100429
  5. SENNA [Concomitant]
     Indication: CONSTIPATION
     Dosage: AT NIGHT. STOPPED AFTER 1 MONTH AGAIN STARTED FROM 5OCT11 AND STOPPED AFTER ONE MONTH
     Route: 048
     Dates: start: 20100205
  6. PROTHIADEN [Concomitant]
     Indication: DEPRESSION
     Route: 048
     Dates: start: 20040727
  7. AMLODIPINE [Concomitant]
     Indication: BLOOD PRESSURE INCREASED
     Route: 048
     Dates: start: 20100326, end: 20100401
  8. PARACETAMOL [Concomitant]
     Indication: PAIN
     Route: 048
     Dates: start: 20080129
  9. RANITIDINE [Concomitant]

REACTIONS (13)
  - Vision blurred [Unknown]
  - Diplopia [Unknown]
  - Pruritus [Not Recovered/Not Resolved]
  - Muscle spasms [Not Recovered/Not Resolved]
  - Weight decreased [Not Recovered/Not Resolved]
  - Local swelling [Unknown]
  - Paraesthesia [Unknown]
  - Skin depigmentation [Unknown]
  - Fatigue [Not Recovered/Not Resolved]
  - Ear discomfort [Unknown]
  - Hepatomegaly [Unknown]
  - Depression [Unknown]
  - Vasodilatation [Unknown]
